FAERS Safety Report 15318770 (Version 1)
Quarter: 2018Q3

REPORT INFORMATION
  Report Type: Spontaneous
  Country: US (occurrence: US)
  Receive Date: 20180818
  Receipt Date: 20180818
  Transmission Date: 20181010
  Serious: No
  Sender: FDA-Public Use
  Company Number: None

PATIENT
  Age: 37 Year
  Sex: Female
  Weight: 56 kg

DRUGS (2)
  1. TOPIRAMATE. [Concomitant]
     Active Substance: TOPIRAMATE
  2. MIRENA [Suspect]
     Active Substance: LEVONORGESTREL
     Dates: start: 20180628

REACTIONS (3)
  - Migraine [None]
  - Headache [None]
  - Quality of life decreased [None]

NARRATIVE: CASE EVENT DATE: 20180818
